FAERS Safety Report 15304490 (Version 2)
Quarter: 2018Q4

REPORT INFORMATION
  Report Type: Report from Study
  Country: US (occurrence: US)
  Receive Date: 20180821
  Receipt Date: 20181016
  Transmission Date: 20190204
  Serious: No
  Sender: FDA-Public Use
  Company Number: US-AMGEN INC.-USASL2018097753

PATIENT
  Age: 46 Year
  Sex: Female
  Weight: 107 kg

DRUGS (3)
  1. TRAMADOL. [Concomitant]
     Active Substance: TRAMADOL
     Indication: HEADACHE
     Dosage: 50 MG, AS NECESSARY
  2. AIMOVIG [Suspect]
     Active Substance: ERENUMAB-AOOE
     Indication: MIGRAINE
     Dosage: 70 MG, UNK
     Route: 058
     Dates: start: 201806
  3. NAPROXEN. [Concomitant]
     Active Substance: NAPROXEN
     Indication: HEADACHE
     Dosage: 500 MG, AS NECESSARY

REACTIONS (3)
  - Injection site bruising [Recovered/Resolved]
  - Injection site urticaria [Unknown]
  - Injection site swelling [Unknown]

NARRATIVE: CASE EVENT DATE: 201806
